FAERS Safety Report 9509305 (Version 1)
Quarter: 2013Q3

REPORT INFORMATION
  Report Type: Spontaneous
  Country: US (occurrence: US)
  Receive Date: 20130909
  Receipt Date: 20130909
  Transmission Date: 20140515
  Serious: Yes (Other)
  Sender: FDA-Public Use
  Company Number: US-BRISTOL-MYERS SQUIBB COMPANY-17316837

PATIENT
  Age: 47 Year
  Sex: Female
  Weight: 108.84 kg

DRUGS (3)
  1. ABILIFY TABS 15 MG [Suspect]
     Indication: MAJOR DEPRESSION
  2. CYMBALTA [Concomitant]
  3. KLONOPIN [Concomitant]

REACTIONS (7)
  - Suicidal ideation [Unknown]
  - Drug dose omission [Unknown]
  - Crying [Unknown]
  - Sleep disorder [Unknown]
  - Asthenia [Unknown]
  - Feeling abnormal [Unknown]
  - Alcohol use [Unknown]
